FAERS Safety Report 18920115 (Version 1)
Quarter: 2021Q1

REPORT INFORMATION
  Report Type: Spontaneous
  Country: HK (occurrence: HK)
  Receive Date: 20210222
  Receipt Date: 20210222
  Transmission Date: 20210420
  Serious: Yes (Other)
  Sender: FDA-Public Use
  Company Number: HK-LUPIN PHARMACEUTICALS INC.-2021-01922

PATIENT
  Age: 4 Year
  Sex: Female

DRUGS (19)
  1. CEFOXITIN [Suspect]
     Active Substance: CEFOXITIN SODIUM
     Indication: MYCOBACTERIUM ABSCESSUS INFECTION
     Dosage: UNK
     Route: 042
  2. CEFOXITIN [Suspect]
     Active Substance: CEFOXITIN SODIUM
     Indication: OSTEOMYELITIS
  3. SULFAMETHOXAZOLE AND TRIMETHOPRIM [Suspect]
     Active Substance: SULFAMETHOXAZOLE\TRIMETHOPRIM
     Indication: OSTEOMYELITIS
  4. GENTAMYCIN [GENTAMICIN] [Concomitant]
     Active Substance: GENTAMICIN
     Indication: MYCOBACTERIUM ABSCESSUS INFECTION
     Dosage: UNK (ANTIBIOTIC?INFUSED CEMENT; TREATMENT CONTINUED FOR 7 MONTHS AND THEN STOPPED)
     Route: 065
  5. DAUNOXOME [Concomitant]
     Active Substance: DAUNORUBICIN CITRATE
     Indication: ACUTE MYELOID LEUKAEMIA
     Dosage: UNK (CHEMOTHERAPY WAS PREMATURELY STOPPED ON DAY 18)
     Route: 042
  6. CYTARABINE. [Concomitant]
     Active Substance: CYTARABINE
     Dosage: 75 MILLIGRAM/SQ. METER, QD ON DAYS 1?4 AND 15?18 OF THE FOUR WEEKLY CYCLE
     Route: 042
  7. VANCOMYCIN [Concomitant]
     Active Substance: VANCOMYCIN
     Indication: MYCOBACTERIUM ABSCESSUS INFECTION
     Dosage: UNK (ANTIBIOTIC?INFUSED CEMENT; TREATMENT CONTINUED FOR 7 MONTHS AND THEN STOPPED)
     Route: 065
  8. CLARITHROMYCIN. [Suspect]
     Active Substance: CLARITHROMYCIN
     Indication: OSTEOMYELITIS
  9. AMIKACIN. [Suspect]
     Active Substance: AMIKACIN
     Indication: MYCOBACTERIUM ABSCESSUS INFECTION
     Dosage: UNK
     Route: 042
  10. AMIKACIN. [Suspect]
     Active Substance: AMIKACIN
     Indication: OSTEOMYELITIS
     Dosage: UNK (ANTIBIOTIC?INFUSED CEMENT; TREATMENT CONTINUED FOR 7 MONTHS AND THEN STOPPED)
     Route: 065
  11. CYTARABINE. [Concomitant]
     Active Substance: CYTARABINE
     Indication: ACUTE MYELOID LEUKAEMIA
     Dosage: 40 MILLIGRAM, SINGLE DOSE
     Route: 037
  12. CLARITHROMYCIN. [Suspect]
     Active Substance: CLARITHROMYCIN
     Indication: MYCOBACTERIUM ABSCESSUS INFECTION
     Dosage: UNK
     Route: 048
  13. INTERFERON GAMMA NOS [Concomitant]
     Active Substance: INTERFERON GAMMA
     Indication: ACUTE MYELOID LEUKAEMIA
     Dosage: UNK (THREE TIMES A WEEK)
     Route: 065
  14. VANCOMYCIN [Concomitant]
     Active Substance: VANCOMYCIN
     Indication: OSTEOMYELITIS
  15. ETOPOSIDE. [Concomitant]
     Active Substance: ETOPOSIDE
     Indication: ACUTE MYELOID LEUKAEMIA
     Dosage: UNK (CHEMOTHERAPY WAS PREMATURELY STOPPED ON DAY 18)
     Route: 042
  16. METHOTREXATE. [Concomitant]
     Active Substance: METHOTREXATE
     Indication: ACUTE MYELOID LEUKAEMIA
     Dosage: 12 MILLIGRAM (CHEMOTHERAPY WAS PREMATURELY STOPPED ON DAY 18)
     Route: 065
  17. SULFAMETHOXAZOLE AND TRIMETHOPRIM [Suspect]
     Active Substance: SULFAMETHOXAZOLE\TRIMETHOPRIM
     Indication: MYCOBACTERIUM ABSCESSUS INFECTION
     Dosage: 10 MILLIGRAM/KILOGRAM, QD
     Route: 048
  18. THIOGUANINE [Concomitant]
     Active Substance: THIOGUANINE
     Indication: ACUTE MYELOID LEUKAEMIA
     Dosage: 125 MILLIGRAM/SQ. METER, QD (ON DAYS 1?4 AND 15?18 OF THE 4 WEEKLY CYCLE; STOPPED ON DAY 18)
     Route: 048
  19. GENTAMYCIN [GENTAMICIN] [Concomitant]
     Active Substance: GENTAMICIN
     Indication: OSTEOMYELITIS

REACTIONS (2)
  - Drug-induced liver injury [Recovering/Resolving]
  - Drug eruption [Recovering/Resolving]
